FAERS Safety Report 8525356-X (Version None)
Quarter: 2012Q3

REPORT INFORMATION
  Report Type: 
  Country: None (occurrence: None)
  Receive Date: 20120720
  Receipt Date: 20120719
  Transmission Date: 20120928
  Serious: Yes (Hospitalization, Other)
  Sender: FDA-Public Use
  Company Number: PHFR2012GB002717

PATIENT
  Sex: Male

DRUGS (3)
  1. CLOZARIL [Suspect]
     Dosage: 300 MG, DAILY
     Route: 048
  2. CLOZARIL [Suspect]
     Indication: SCHIZOPHRENIA
     Route: 048
     Dates: start: 20010701, end: 20120429
  3. VALPROATE SODIUM [Concomitant]
     Dosage: 1200 MG, UNK
     Route: 048

REACTIONS (6)
  - FALL [None]
  - TYPE 2 DIABETES MELLITUS [None]
  - BLOOD CHOLESTEROL INCREASED [None]
  - WHITE BLOOD CELL COUNT INCREASED [None]
  - HYPERTENSION [None]
  - NEUTROPHIL COUNT INCREASED [None]
